FAERS Safety Report 7674821-6 (Version None)
Quarter: 2011Q3

REPORT INFORMATION
  Report Type: 
  Country: None (occurrence: None)
  Receive Date: 20110810
  Receipt Date: 20110805
  Transmission Date: 20111222
  Serious: Yes (Hospitalization)
  Sender: FDA-Public Use
  Company Number: EC-ROCHE-795043

PATIENT
  Sex: Female

DRUGS (3)
  1. GLUCOSAMINE [Concomitant]
     Indication: OSTEOARTHRITIS
     Route: 048
     Dates: start: 20100701, end: 20110720
  2. VIT D [Concomitant]
     Indication: OSTEOPOROSIS
     Dosage: DRUG: CALCIO+VIT D
     Route: 048
     Dates: start: 20110501, end: 20110720
  3. BONIVA [Suspect]
     Indication: OSTEOPOROSIS
     Route: 048
     Dates: start: 20100301, end: 20110707

REACTIONS (2)
  - PANCREATITIS [None]
  - ABDOMINAL PAIN [None]
